FAERS Safety Report 22263396 (Version 4)
Quarter: 2025Q2

REPORT INFORMATION
  Report Type: Spontaneous
  Country: US (occurrence: US)
  Receive Date: 20230428
  Receipt Date: 20250612
  Transmission Date: 20250716
  Serious: No
  Sender: AMGEN
  Company Number: US-PFIZER INC-PV202300075531

PATIENT
  Age: 64 Year
  Sex: Male

DRUGS (1)
  1. ETANERCEPT [Suspect]
     Active Substance: ETANERCEPT
     Indication: Product used for unknown indication
     Route: 065

REACTIONS (1)
  - Drug hypersensitivity [Unknown]
